FAERS Safety Report 8805131 (Version 2)
Quarter: 2012Q4

REPORT INFORMATION
  Report Type: 
  Country: US (occurrence: US)
  Receive Date: 20120924
  Receipt Date: 20121022
  Transmission Date: 20130627
  Serious: No
  Sender: FDA-Public Use
  Company Number: US-B.I. PHARMACEUTICALS,INC./RIDGEFIELD-2012-BP-22729BP

PATIENT
  Age: 83 Year
  Sex: Male
  Weight: 77 kg

DRUGS (5)
  1. AGGRENOX [Suspect]
     Indication: CEREBROVASCULAR ACCIDENT PROPHYLAXIS
     Dates: start: 201105
  2. SIMVASTATIN [Concomitant]
     Dosage: 40 mg
     Route: 048
     Dates: start: 2002
  3. LISINOPRIL [Concomitant]
     Dosage: 20 mg
     Route: 048
     Dates: start: 2002
  4. TIMOLOL MALEATE [Concomitant]
     Indication: GLAUCOMA
     Dates: start: 201209
  5. VITAMIN D [Concomitant]
     Dosage: 2000 U
     Route: 048

REACTIONS (1)
  - Pemphigoid [Unknown]
